FAERS Safety Report 9681317 (Version 1)
Quarter: 2013Q4

REPORT INFORMATION
  Report Type: Spontaneous
  Country: US (occurrence: None)
  Receive Date: 20131108
  Receipt Date: 20131108
  Transmission Date: 20140711
  Serious: Yes (Disabling)
  Sender: FDA-Public Use
  Company Number: None

PATIENT
  Age: 47 Year
  Sex: Female
  Weight: 79.38 kg

DRUGS (2)
  1. MIRENA [Suspect]
     Indication: MENORRHAGIA
     Dosage: VAGINAL
     Route: 067
     Dates: start: 20120725, end: 20131025
  2. MIRENA [Suspect]
     Indication: MENSTRUATION IRREGULAR
     Dosage: VAGINAL
     Route: 067
     Dates: start: 20120725, end: 20131025

REACTIONS (7)
  - Ovarian cyst [None]
  - Mastitis [None]
  - Nipple exudate bloody [None]
  - Migraine [None]
  - Fatigue [None]
  - Increased tendency to bruise [None]
  - Bedridden [None]
